FAERS Safety Report 8080356-1 (Version None)
Quarter: 2012Q1

REPORT INFORMATION
  Report Type: 
  Country: None (occurrence: None)
  Receive Date: 20120130
  Receipt Date: 20120118
  Transmission Date: 20120608
  Serious: Yes (Other)
  Sender: FDA-Public Use
  Company Number: ES-PFIZER INC-2012020178

PATIENT
  Age: 53 Year
  Sex: Male

DRUGS (1)
  1. CELECOXIB [Suspect]
     Indication: INTERVERTEBRAL DISC PROTRUSION
     Dosage: 200 MG, UNK
     Route: 048
     Dates: start: 20101201, end: 20101201

REACTIONS (4)
  - ERYTHEMA [None]
  - SKIN TIGHTNESS [None]
  - MALAISE [None]
  - ASTHENIA [None]
